FAERS Safety Report 16269422 (Version 1)
Quarter: 2019Q2

REPORT INFORMATION
  Report Type: Spontaneous
  Country: RS (occurrence: RS)
  Receive Date: 20190503
  Receipt Date: 20190503
  Transmission Date: 20190711
  Serious: Yes (Other)
  Sender: FDA-Public Use
  Company Number: RS-GLAXOSMITHKLINE-RS2019078672

PATIENT
  Age: 76 Year
  Sex: Female

DRUGS (8)
  1. FRAXIPARINE [Suspect]
     Active Substance: NADROPARIN CALCIUM
     Indication: SKIN NEOPLASM EXCISION
     Dosage: 5700 IU, 1 DOSE DAILY
     Route: 058
     Dates: start: 20190328, end: 20190328
  2. FOLNAK [Concomitant]
     Active Substance: FOLIC ACID
     Indication: PRODUCT USED FOR UNKNOWN INDICATION
     Dosage: 350 MG, 1 DOSE DAILY
     Route: 048
  3. CEFUROXIME SODIUM. [Suspect]
     Active Substance: CEFUROXIME SODIUM
     Indication: ANTIBIOTIC PROPHYLAXIS
     Dosage: 1.5 G
     Route: 042
  4. DILACOR (DIGOXIN) [Concomitant]
     Active Substance: DIGOXIN
     Indication: PRODUCT USED FOR UNKNOWN INDICATION
     Dosage: 0.25 MG, 1 DOSE DAILY
     Route: 048
  5. TENSEC [Concomitant]
     Indication: PRODUCT USED FOR UNKNOWN INDICATION
     Dosage: 5 MG, 1 DOSE DAILY
     Route: 048
  6. HEFEROL [Concomitant]
     Active Substance: FERROUS FUMARATE
     Indication: PRODUCT USED FOR UNKNOWN INDICATION
     Dosage: 350 MG, 1 DOSE DAILY
     Route: 048
  7. CITERAL [Suspect]
     Active Substance: CIPROFLOXACIN
     Indication: SKIN NEOPLASM EXCISION
     Dosage: ONE HOUR BEFORE ONSET AND THEN 12 HOURS LATER
     Route: 042
     Dates: start: 20190328
  8. PRENESSA [Concomitant]
     Active Substance: PERINDOPRIL
     Indication: PRODUCT USED FOR UNKNOWN INDICATION
     Dosage: 4 MG, 1 DOSE DAILY
     Route: 048

REACTIONS (3)
  - Chest pain [Recovered/Resolved]
  - Tinnitus [Recovered/Resolved]
  - Dyspnoea [Recovered/Resolved]

NARRATIVE: CASE EVENT DATE: 20190328
